FAERS Safety Report 4558066-4 (Version None)
Quarter: 2005Q1

REPORT INFORMATION
  Report Type: 
  Country: None (occurrence: None)
  Receive Date: 20050103
  Receipt Date: 20040921
  Transmission Date: 20050727
  Serious: Yes (Other)
  Sender: FDA-Public Use
  Company Number: 2004UW19641

PATIENT
  Age: 76 Year
  Sex: Female
  Weight: 63.05 kg

DRUGS (6)
  1. CRESTOR [Suspect]
     Indication: BLOOD CHOLESTEROL INCREASED
     Dosage: 10 MG DAILY PO
     Route: 048
     Dates: start: 20040401
  2. HUMULIN N [Concomitant]
  3. FOLIC ACID [Concomitant]
  4. FUROSEMIDE [Concomitant]
  5. METOLAZONE [Concomitant]
  6. ACTOS /CAN/ [Concomitant]

REACTIONS (2)
  - ALOPECIA [None]
  - BLOOD CHOLESTEROL INCREASED [None]
